FAERS Safety Report 5218931-1 (Version None)
Quarter: 2007Q1

REPORT INFORMATION
  Report Type: 
  Country: None (occurrence: None)
  Receive Date: 20070125
  Receipt Date: 20070116
  Transmission Date: 20070707
  Serious: Yes (Hospitalization, Other)
  Sender: FDA-Public Use
  Company Number: DE-JNJFOC-20061201888

PATIENT
  Sex: Female
  Weight: 51 kg

DRUGS (5)
  1. REMICADE [Suspect]
     Indication: ANKYLOSING SPONDYLITIS
     Route: 042
  2. METEX [Concomitant]
     Route: 065
  3. FOLCUR [Concomitant]
     Route: 065
  4. SYMPAL 25 [Concomitant]
     Route: 065
  5. PANTOPRAZOLE SODIUM [Concomitant]
     Route: 065

REACTIONS (2)
  - DISSEMINATED TUBERCULOSIS [None]
  - PULMONARY TUBERCULOSIS [None]
